FAERS Safety Report 21810531 (Version 2)
Quarter: 2023Q1

REPORT INFORMATION
  Report Type: Spontaneous
  Country: GB (occurrence: GB)
  Receive Date: 20230103
  Receipt Date: 20230104
  Transmission Date: 20230417
  Serious: Yes (Hospitalization, Other)
  Sender: FDA-Public Use
  Company Number: GB-ROCHE-3247268

PATIENT
  Age: 55 Year
  Sex: Male

DRUGS (15)
  1. CARBOPLATIN [Suspect]
     Active Substance: CARBOPLATIN
     Indication: High-grade B-cell lymphoma
     Dosage: 2 CYCLES
     Route: 065
     Dates: start: 20220420, end: 20220512
  2. CISPLATIN [Suspect]
     Active Substance: CISPLATIN
     Indication: High-grade B-cell lymphoma
     Dosage: 2 CYCLES
     Route: 065
     Dates: start: 20220420, end: 20220512
  3. GEMCITABINE HYDROCHLORIDE [Suspect]
     Active Substance: GEMCITABINE HYDROCHLORIDE
     Indication: High-grade B-cell lymphoma
     Dosage: UNK
     Route: 065
     Dates: start: 20220420, end: 20220512
  4. OXALIPLATIN [Suspect]
     Active Substance: OXALIPLATIN
     Indication: High-grade B-cell lymphoma
     Dosage: 2 CYCLES
     Route: 065
     Dates: start: 20220420, end: 20220512
  5. RITUXIMAB [Suspect]
     Active Substance: RITUXIMAB
     Indication: High-grade B-cell lymphoma
     Dosage: UNK
     Route: 065
     Dates: start: 20210909, end: 20210914
  6. RITUXIMAB [Suspect]
     Active Substance: RITUXIMAB
     Dosage: UNK
     Route: 065
     Dates: start: 20210917, end: 20220303
  7. RITUXIMAB [Suspect]
     Active Substance: RITUXIMAB
     Dosage: UNK
     Route: 065
     Dates: start: 20220420, end: 20220512
  8. RITUXIMAB [Suspect]
     Active Substance: RITUXIMAB
     Dosage: UNK
     Route: 065
     Dates: start: 20221203, end: 20221203
  9. VINCRISTINE SULFATE [Suspect]
     Active Substance: VINCRISTINE SULFATE
     Indication: High-grade B-cell lymphoma
     Dosage: UNK
     Route: 065
     Dates: start: 20210909, end: 20210914
  10. VINCRISTINE SULFATE [Suspect]
     Active Substance: VINCRISTINE SULFATE
     Dosage: UNK
     Route: 065
     Dates: start: 20210917, end: 20220103
  11. BENDAMUSTINE [Suspect]
     Active Substance: BENDAMUSTINE
     Indication: High-grade B-cell lymphoma
     Dosage: UNK
     Route: 065
     Dates: start: 20221203, end: 20221203
  12. CYCLOPHOSPHAMIDE [Suspect]
     Active Substance: CYCLOPHOSPHAMIDE
     Indication: High-grade B-cell lymphoma
     Dosage: UNK
     Route: 065
     Dates: start: 20210917, end: 20220103
  13. EPIRUBICIN [Suspect]
     Active Substance: EPIRUBICIN
     Indication: High-grade B-cell lymphoma
     Dosage: UNK
     Route: 065
     Dates: start: 20210917, end: 20220103
  14. POLATUZUMAB VEDOTIN [Suspect]
     Active Substance: POLATUZUMAB VEDOTIN
     Indication: High-grade B-cell lymphoma
     Dosage: UNK
     Route: 065
     Dates: start: 20221203, end: 20221203
  15. PREDNISONE [Suspect]
     Active Substance: PREDNISONE
     Indication: High-grade B-cell lymphoma
     Dosage: UNK
     Route: 065
     Dates: start: 20210917, end: 20220103

REACTIONS (3)
  - COVID-19 [Not Recovered/Not Resolved]
  - Gastrointestinal obstruction [Unknown]
  - Neoplasm progression [Unknown]

NARRATIVE: CASE EVENT DATE: 20221025
